FAERS Safety Report 8479752 (Version 8)
Quarter: 2014Q3

REPORT INFORMATION
  Report Type: Spontaneous
  Country: GB (occurrence: GB)
  Receive Date: 20120328
  Receipt Date: 20140724
  Transmission Date: 20150326
  Serious: Yes (Other)
  Sender: FDA-Public Use
  Company Number: PHFR2011GB05458

PATIENT
  Age: 38 Year
  Sex: Male

DRUGS (9)
  1. LOPRAZOLAM [Concomitant]
     Active Substance: LOPRAZOLAM
     Dosage: 1 MG, NOCTE PRN (ONCE OR TWICE PER MONTH)
     Route: 048
  2. SIMBICORT TURBUHALER [Concomitant]
     Indication: ASTHMA
     Dosage: UNK UKN, UNK
     Route: 055
  3. ZOLPIDEM [Concomitant]
     Active Substance: ZOLPIDEM\ZOLPIDEM TARTRATE
     Dosage: PRN
  4. DIAZEPAM. [Concomitant]
     Active Substance: DIAZEPAM
     Dosage: 10 MG, NOCTE PRN
  5. DILTIAZEM [Concomitant]
     Active Substance: DILTIAZEM
     Indication: BLOOD PRESSURE INCREASED
     Dosage: 90 MG, DAILY
     Route: 048
     Dates: start: 2011
  6. CLOZARIL [Suspect]
     Active Substance: CLOZAPINE
     Indication: SCHIZOPHRENIA
     Dosage: 225 MG, QHS
     Route: 048
     Dates: start: 1997
  7. CLOZARIL [Suspect]
     Active Substance: CLOZAPINE
     Dosage: UNK UKN, UNK
     Route: 048
     Dates: start: 20010701
  8. BENDROFLUMETHIAZIDE [Concomitant]
     Active Substance: BENDROFLUMETHIAZIDE
     Indication: BLOOD PRESSURE INCREASED
     Dosage: 2.5 MG, DAILY
     Route: 048
     Dates: start: 2011
  9. SALBUTAMOL [Concomitant]
     Active Substance: ALBUTEROL
     Indication: ASTHMA
     Dosage: UNK UKN, UNK
     Route: 055

REACTIONS (13)
  - Blood immunoglobulin A increased [Unknown]
  - Blood potassium decreased [Recovered/Resolved]
  - Eosinophil count decreased [Unknown]
  - Intestinal polyp [Unknown]
  - Platelet count decreased [Not Recovered/Not Resolved]
  - Serum ferritin increased [Unknown]
  - Mean cell haemoglobin increased [Unknown]
  - Alanine aminotransferase increased [Unknown]
  - Haemochromatosis [Unknown]
  - Blood triglycerides increased [Unknown]
  - Rectal haemorrhage [Not Recovered/Not Resolved]
  - Blood immunoglobulin M increased [Unknown]
  - Body mass index increased [Unknown]

NARRATIVE: CASE EVENT DATE: 2005
